FAERS Safety Report 10375583 (Version 1)
Quarter: 2014Q1

REPORT INFORMATION
  Report Type: Spontaneous
  Country: US (occurrence: None)
  Receive Date: 20140306
  Receipt Date: 20140306
  Transmission Date: 20141002
  Serious: Yes (Hospitalization)
  Sender: FDA-Public Use
  Company Number: 163-21880-13010683

PATIENT
  Age: 69 Year
  Sex: Female

DRUGS (9)
  1. REVLIMID (LENALIDOMIDE) (25 MILLIGRAM, CAPSULES) [Suspect]
     Indication: PLASMA CELL MYELOMA
     Dosage: 14 IN 14 D
     Route: 048
     Dates: start: 20121025
  2. ACYCLOVIR [Concomitant]
  3. AMLODIPINE BESYLATE (AMLODIPINE BESILATE) [Concomitant]
  4. ASPIRIN (ACETYLSALICYLIC ACID) [Concomitant]
  5. CENTRUM SILVER [Concomitant]
  6. CLARITIN (LORATADINE) [Concomitant]
  7. COLACE (DOCUSATE SODIUM) [Concomitant]
  8. DEXAMETHASONE [Concomitant]
  9. FLONASE (FLUTICASONE PROPIONATE) [Concomitant]

REACTIONS (1)
  - Pneumonia [None]
